FAERS Safety Report 5504495-1 (Version None)
Quarter: 2007Q4

REPORT INFORMATION
  Report Type: 
  Country: None (occurrence: None)
  Receive Date: 20071030
  Receipt Date: 20070821
  Transmission Date: 20080405
  Serious: No
  Sender: FDA-Public Use
  Company Number: 266719

PATIENT
  Age: 52 Year
  Sex: Female

DRUGS (2)
  1. LEVEMIR [Suspect]
     Indication: TYPE 1 DIABETES MELLITUS
     Dosage: 6 IU, SINGLE, SUBCUTANEOUS 60 IU, QD, SUBCUTANEOUS
     Route: 058
     Dates: start: 20070801, end: 20070801
  2. LEVEMIR [Suspect]
     Indication: TYPE 1 DIABETES MELLITUS
     Dosage: 6 IU, SINGLE, SUBCUTANEOUS 60 IU, QD, SUBCUTANEOUS
     Route: 058
     Dates: start: 20070801

REACTIONS (2)
  - BLOOD GLUCOSE INCREASED [None]
  - INCORRECT DOSE ADMINISTERED [None]
